FAERS Safety Report 9992259 (Version 2)
Quarter: 2014Q1

REPORT INFORMATION
  Report Type: Spontaneous
  Country: US (occurrence: US)
  Receive Date: 20140310
  Receipt Date: 20140310
  Transmission Date: 20141002
  Serious: No
  Sender: FDA-Public Use
  Company Number: US-ASTELLAS-2013US012838

PATIENT
  Age: 86 Year
  Sex: Male
  Weight: 66 kg

DRUGS (1)
  1. XTANDI [Suspect]
     Indication: PROSTATE CANCER
     Dosage: 160 MG, ONCE DAILY
     Route: 048
     Dates: start: 20131128

REACTIONS (8)
  - Off label use [Unknown]
  - Drug ineffective [Unknown]
  - Product size issue [Unknown]
  - Foreign body [Recovered/Resolved]
  - Throat irritation [Recovered/Resolved]
  - Dysgeusia [Unknown]
  - Dysphagia [Recovered/Resolved]
  - Prostatic specific antigen increased [Unknown]
